FAERS Safety Report 8786262 (Version 1)
Quarter: 2012Q4

REPORT INFORMATION
  Report Type: 
  Country: US (occurrence: US)
  Receive Date: 20120914
  Receipt Date: 20120914
  Transmission Date: 20130627
  Serious: No
  Sender: FDA-Public Use
  Company Number: US-ASTRAZENECA-2012SE65187

PATIENT
  Age: 74 Year
  Sex: Female

DRUGS (1)
  1. TOPROL XL [Suspect]
     Route: 048

REACTIONS (4)
  - Hypertension [Unknown]
  - Tremor [Unknown]
  - Tachycardia [Unknown]
  - Intentional drug misuse [Unknown]
